FAERS Safety Report 7211475-7 (Version None)
Quarter: 2011Q1

REPORT INFORMATION
  Report Type: 
  Country: None (occurrence: None)
  Receive Date: 20110105
  Receipt Date: 20101228
  Transmission Date: 20110831
  Serious: Yes (Hospitalization)
  Sender: FDA-Public Use
  Company Number: PHHO2010RU06242

PATIENT
  Sex: Male
  Weight: 88.5 kg

DRUGS (8)
  1. ASPIRIN [Concomitant]
  2. AMN107 [Suspect]
     Indication: CHRONIC MYELOID LEUKAEMIA
     Dosage: 800 MG, DAILY
     Route: 048
     Dates: start: 20100825
  3. ENALAPRIL [Concomitant]
  4. METOPROLOL [Concomitant]
  5. STI571/CGP57148B [Suspect]
     Dosage: 600 MG, UNK
     Route: 048
     Dates: end: 20100701
  6. STI571/CGP57148B [Suspect]
     Indication: CHRONIC MYELOID LEUKAEMIA
     Dosage: 600 MG, UNK
     Route: 048
     Dates: start: 20100212, end: 20100627
  7. ACETYLSALICYLIC ACID [Concomitant]
  8. BETALOC [Concomitant]

REACTIONS (2)
  - RASH [None]
  - ECZEMA [None]
